FAERS Safety Report 4803080-4 (Version None)
Quarter: 2005Q4

REPORT INFORMATION
  Report Type: 
  Country: None (occurrence: None)
  Receive Date: 20051019
  Receipt Date: 20051006
  Transmission Date: 20060501
  Serious: Yes (Hospitalization)
  Sender: FDA-Public Use
  Company Number: US-NOVOPROD-247581

PATIENT
  Sex: Male

DRUGS (2)
  1. NOVOMIX 30 FLEXPEN [Suspect]
     Indication: INSULIN-REQUIRING TYPE II DIABETES MELLITUS
     Dosage: UNK, UNK
     Dates: start: 20050814
  2. NOVOMIX 30 FLEXPEN [Suspect]
     Dosage: 12 U, QD
     Route: 058
     Dates: start: 20050814

REACTIONS (1)
  - SYNCOPE [None]
